FAERS Safety Report 16340462 (Version 1)
Quarter: 2019Q2

REPORT INFORMATION
  Report Type: Spontaneous
  Country: US (occurrence: US)
  Receive Date: 20190522
  Receipt Date: 20190522
  Transmission Date: 20190711
  Serious: Yes (Hospitalization)
  Sender: FDA-Public Use
  Company Number: US-ROCHE-2321415

PATIENT
  Sex: Female

DRUGS (20)
  1. OMEPRAZOLE. [Concomitant]
     Active Substance: OMEPRAZOLE
     Indication: OFF LABEL USE
     Route: 065
  2. ROSUVASTATIN. [Concomitant]
     Active Substance: ROSUVASTATIN
     Indication: OFF LABEL USE
     Dosage: 40 M
     Route: 065
  3. BENADRYL ALLERGY [Concomitant]
     Active Substance: DIPHENHYDRAMINE HYDROCHLORIDE
     Indication: OFF LABEL USE
     Route: 065
  4. DURAGESIC [Concomitant]
     Active Substance: FENTANYL
     Indication: OFF LABEL USE
     Route: 065
  5. IBUPROFEN. [Concomitant]
     Active Substance: IBUPROFEN
     Indication: OFF LABEL USE
     Route: 065
  6. XANAX [Concomitant]
     Active Substance: ALPRAZOLAM
     Indication: OFF LABEL USE
     Route: 065
  7. XELODA [Suspect]
     Active Substance: CAPECITABINE
     Indication: OFF LABEL USE
  8. LEXAPRO [Concomitant]
     Active Substance: ESCITALOPRAM OXALATE
     Indication: OFF LABEL USE
     Route: 065
  9. CATAPRES-TTS [Concomitant]
     Active Substance: CLONIDINE
     Indication: OFF LABEL USE
  10. TYLENOL EXTRA STRENGTH [Concomitant]
     Active Substance: ACETAMINOPHEN
     Indication: OFF LABEL USE
     Route: 065
  11. CYCLOBENZAPRINE. [Concomitant]
     Active Substance: CYCLOBENZAPRINE
     Indication: OFF LABEL USE
     Route: 065
  12. XELODA [Suspect]
     Active Substance: CAPECITABINE
     Indication: OSTEOARTHRITIS
     Route: 065
  13. METOPROLOL. [Concomitant]
     Active Substance: METOPROLOL
     Indication: OFF LABEL USE
     Dosage: TB2 50 MG
     Route: 065
  14. SENNA [SENNA ALEXANDRINA] [Concomitant]
     Active Substance: SENNA LEAF
     Indication: OFF LABEL USE
     Route: 065
  15. VITAMIN C [Concomitant]
     Active Substance: ASCORBIC ACID
     Indication: OFF LABEL USE
  16. ASPIRIN [ACETYLSALICYLIC ACID] [Concomitant]
     Active Substance: ASPIRIN
     Indication: OFF LABEL USE
     Route: 065
  17. BIOTIN [Concomitant]
     Active Substance: BIOTIN
     Indication: OFF LABEL USE
     Route: 065
  18. BUMETANIDE. [Concomitant]
     Active Substance: BUMETANIDE
     Indication: OFF LABEL USE
     Route: 065
  19. LETROZOLE. [Concomitant]
     Active Substance: LETROZOLE
     Indication: OFF LABEL USE
     Route: 065
  20. CLONIDINE HCL [Concomitant]
     Active Substance: CLONIDINE HYDROCHLORIDE
     Indication: OFF LABEL USE
     Route: 065

REACTIONS (4)
  - Off label use [Unknown]
  - Psychotic disorder [Not Recovered/Not Resolved]
  - Fatigue [Not Recovered/Not Resolved]
  - Intentional product use issue [Unknown]
